FAERS Safety Report 17176179 (Version 2)
Quarter: 2019Q4

REPORT INFORMATION
  Report Type: Spontaneous
  Country: PL (occurrence: PL)
  Receive Date: 20191219
  Receipt Date: 20191219
  Transmission Date: 20200122
  Serious: Yes (Hospitalization)
  Sender: FDA-Public Use
  Company Number: NVSC2019PL067128

PATIENT
  Age: 60 Year
  Sex: Female

DRUGS (2)
  1. PIPERACILLIN. [Concomitant]
     Active Substance: PIPERACILLIN SODIUM
     Indication: ANTIBIOTIC THERAPY
     Route: 065
  2. CIPROFLOXACIN. [Suspect]
     Active Substance: CIPROFLOXACIN
     Indication: ANTIBIOTIC THERAPY
     Dosage: UNK
     Route: 065

REACTIONS (3)
  - Asthenia [Recovering/Resolving]
  - Pyrexia [Recovering/Resolving]
  - Hepatic cyst infection [Recovered/Resolved]
